FAERS Safety Report 8459840 (Version 2)
Quarter: 2012Q4

REPORT INFORMATION
  Report Type: 
  Country: US (occurrence: US)
  Receive Date: 20120314
  Receipt Date: 20121024
  Transmission Date: 20130627
  Serious: No
  Sender: FDA-Public Use
  Company Number: US-ASTRAZENECA-2011SE19768

PATIENT
  Age: 63 Year
  Sex: Female

DRUGS (3)
  1. TOPROL XL [Suspect]
     Route: 048
  2. NEXIUM [Suspect]
     Route: 048
  3. DIOVAN HCT [Concomitant]

REACTIONS (4)
  - Influenza [Unknown]
  - Urinary tract infection [Recovered/Resolved]
  - Gout [Unknown]
  - Fluid retention [Unknown]
